FAERS Safety Report 7333126-3 (Version None)
Quarter: 2011Q1

REPORT INFORMATION
  Report Type: 
  Country: None (occurrence: None)
  Receive Date: 20110304
  Receipt Date: 20110221
  Transmission Date: 20110831
  Serious: Yes (Other)
  Sender: FDA-Public Use
  Company Number: GB-WATSON-2011-02403

PATIENT
  Age: 61 Year
  Sex: Female

DRUGS (4)
  1. TAMOXIFEN CITRATE [Suspect]
     Indication: BREAST CANCER
     Dosage: UNK
  2. CYCLOPHOSPHAMIDE [Suspect]
     Indication: BREAST CANCER
     Dosage: 6 CYCLES
  3. FLUOROURACIL [Suspect]
     Indication: BREAST CANCER
     Dosage: 6 CYCLES
  4. METHOTREXATE [Suspect]
     Indication: BREAST CANCER
     Dosage: 6 CYCLES

REACTIONS (1)
  - ANGIOSARCOMA [None]
